FAERS Safety Report 7773759-3 (Version None)
Quarter: 2011Q3

REPORT INFORMATION
  Report Type: 
  Country: None (occurrence: None)
  Receive Date: 20110923
  Receipt Date: 20110919
  Transmission Date: 20111222
  Serious: Yes (Congenital Anomaly, Other)
  Sender: FDA-Public Use
  Company Number: GB-BRISTOL-MYERS SQUIBB COMPANY-16089328

PATIENT
  Sex: Male

DRUGS (3)
  1. TRUVADA [Suspect]
     Route: 064
     Dates: start: 20100801, end: 20110901
  2. RITONAVIR [Suspect]
     Route: 064
     Dates: start: 20100801, end: 20110901
  3. ATAZANAVIR [Suspect]
     Route: 064
     Dates: start: 20100801, end: 20110901

REACTIONS (1)
  - CONGENITAL TERATOMA [None]
